FAERS Safety Report 7655900-6 (Version None)
Quarter: 2011Q3

REPORT INFORMATION
  Report Type: 
  Country: None (occurrence: None)
  Receive Date: 20110804
  Receipt Date: 20110804
  Transmission Date: 20111222
  Serious: Yes (Congenital Anomaly)
  Sender: FDA-Public Use
  Company Number: None

PATIENT
  Age: 7 Year
  Sex: Female
  Weight: 20.411 kg

DRUGS (1)
  1. ZOLOFT [Suspect]
     Indication: MOOD SWINGS

REACTIONS (2)
  - MATERNAL DRUGS AFFECTING FOETUS [None]
  - ATTENTION DEFICIT/HYPERACTIVITY DISORDER [None]
